FAERS Safety Report 18489542 (Version 7)
Quarter: 2021Q1

REPORT INFORMATION
  Report Type: Other
  Country: CZ (occurrence: CZ)
  Receive Date: 20201111
  Receipt Date: 20210203
  Transmission Date: 20210419
  Serious: Yes (Hospitalization, Disabling, Other)
  Sender: FDA-Public Use
  Company Number: CZ-STRIDES ARCOLAB LIMITED-2020SP013579

PATIENT
  Age: 96 Year
  Sex: Female

DRUGS (50)
  1. BETALOC [METOPROLOL TARTRATE] [Interacting]
     Active Substance: METOPROLOL TARTRATE
     Dosage: UNK (DOSE REDUCED)
     Route: 065
  2. METAMIZOLE [Interacting]
     Active Substance: METAMIZOLE
     Indication: POST HERPETIC NEURALGIA
     Dosage: UNK
     Route: 065
  3. CORDARONE [Interacting]
     Active Substance: AMIODARONE HYDROCHLORIDE
     Indication: ATRIAL FIBRILLATION
     Dosage: 200 MILLIGRAM, QD
     Route: 065
  4. ELIQUIS [Interacting]
     Active Substance: APIXABAN
     Dosage: UNK (DOSE REDUCED)
     Route: 065
  5. GUTTALAX [SODIUM PICOSULFATE] [Interacting]
     Active Substance: SODIUM PICOSULFATE
     Indication: CONSTIPATION
     Dosage: 1 DOSAGE FORM (1DF=10?20 GUTTES)
     Route: 065
  6. PANADOL [Interacting]
     Active Substance: ACETAMINOPHEN
     Indication: PAIN
     Dosage: 1.5 DF (3?4 TIMES A DAY)
     Route: 065
  7. CONTROLOC [Interacting]
     Active Substance: PANTOPRAZOLE SODIUM
     Indication: PRODUCT USED FOR UNKNOWN INDICATION
     Dosage: 20 MILLIGRAM, QD
     Route: 065
  8. METHOTREXATE SODIUM. [Interacting]
     Active Substance: METHOTREXATE SODIUM
     Dosage: UNK (DOSE REDUCED)
     Route: 065
  9. NOVALGIN [CAFFEINE;PARACETAMOL;PROPYPHENAZONE] [Interacting]
     Active Substance: ACETAMINOPHEN\CAFFEINE\PROPYPHENAZONE
     Indication: HYPERTENSION
     Dosage: 500 MILLIGRAM, EVERY 12 HRS, MEDICATION ERROR
     Route: 065
  10. PREDNISOLONE. [Interacting]
     Active Substance: PREDNISOLONE
     Dosage: UNK (DOSE REDUCED)
     Route: 065
  11. AMLODIPINE [Interacting]
     Active Substance: AMLODIPINE BESYLATE
     Dosage: UNK (DOSE REDUCED)
     Route: 065
  12. MELOXICAM. [Interacting]
     Active Substance: MELOXICAM
     Dosage: UNK (DOSE REDUCED)
     Route: 065
  13. CALCICHEW?D3 [Interacting]
     Active Substance: CALCIUM\CHOLECALCIFEROL
     Indication: PRODUCT USED FOR UNKNOWN INDICATION
     Dosage: UNK UNK, QD
     Route: 065
  14. OXAZEPAM. [Interacting]
     Active Substance: OXAZEPAM
     Indication: DRUG ABUSE
     Dosage: UNK
     Route: 048
  15. EUTHYROX [Interacting]
     Active Substance: LEVOTHYROXINE SODIUM
     Indication: AUTOIMMUNE THYROIDITIS
     Dosage: 100 MICROGRAM, QD
     Route: 048
  16. METHOTREXATE SODIUM. [Interacting]
     Active Substance: METHOTREXATE SODIUM
     Indication: RHEUMATOID ARTHRITIS
     Dosage: 10 MILLIGRAM, ONCE A WEEK
     Route: 048
     Dates: start: 2010
  17. METAMIZOLE [Interacting]
     Active Substance: METAMIZOLE
     Dosage: UNK (DOSE REDUCED)
     Route: 065
  18. ELIQUIS [Interacting]
     Active Substance: APIXABAN
     Dosage: 5 MILLIGRAM (PER DAY)
     Route: 065
  19. GUTTALAX [SODIUM PICOSULFATE] [Interacting]
     Active Substance: SODIUM PICOSULFATE
     Dosage: 1 DOSAGE FORM (DOSE REDUCED)
     Route: 065
  20. CONDROSULF [Interacting]
     Active Substance: SODIUM CHONDROITIN SULFATE
     Dosage: UNK (DOSE REDUCED)
     Route: 065
  21. DUROGESIC [Interacting]
     Active Substance: FENTANYL
     Indication: POST HERPETIC NEURALGIA
     Dosage: 25 MICROGRAM  Q72H, MEDICATION ERROR
     Route: 065
     Dates: start: 2015
  22. PREDNISOLONE. [Interacting]
     Active Substance: PREDNISOLONE
     Indication: PRODUCT USED FOR UNKNOWN INDICATION
     Dosage: 5 MILLIGRAM, QD
     Route: 065
  23. TEZEO [Interacting]
     Active Substance: TELMISARTAN
     Dosage: UNK (DOSE REDUCED)
     Route: 065
  24. ELIQUIS [Interacting]
     Active Substance: APIXABAN
     Indication: ANTICOAGULANT THERAPY
     Dosage: 5 MILLIGRAM, EVERY 12 HRS, MEDICATION ERROR
     Route: 065
  25. NOVALGIN [CAFFEINE;PARACETAMOL;PROPYPHENAZONE] [Interacting]
     Active Substance: ACETAMINOPHEN\CAFFEINE\PROPYPHENAZONE
     Dosage: UNK (DOSE REDUCED)
     Route: 065
  26. BETALOC ZOK [Interacting]
     Active Substance: METOPROLOL SUCCINATE
     Dosage: UNK (DOSE REDUCED)
     Route: 065
  27. IBUPROFEN. [Suspect]
     Active Substance: IBUPROFEN
     Indication: PAIN
     Dosage: MISUSE
     Route: 065
  28. BETALOC [METOPROLOL TARTRATE] [Interacting]
     Active Substance: METOPROLOL TARTRATE
     Indication: PRODUCT USED FOR UNKNOWN INDICATION
     Dosage: 25 MILLIGRAM, QD
     Route: 065
  29. TEZEO [Interacting]
     Active Substance: TELMISARTAN
     Indication: PRODUCT USED FOR UNKNOWN INDICATION
     Dosage: 1 DOSAGE FORM (1DF=80/12.5 MG) (PER DAY)
     Route: 065
  30. CORDARONE [Interacting]
     Active Substance: AMIODARONE HYDROCHLORIDE
     Dosage: UNK (DOSE REDUCED)
     Route: 065
  31. CARDILAN [NICOFURANOSE] [Interacting]
     Active Substance: NICOFURANOSE
     Dosage: UNK (DOSE REDUCED)
     Route: 065
  32. ROSUCARD [Interacting]
     Active Substance: ROSUVASTATIN CALCIUM
     Indication: PRODUCT USED FOR UNKNOWN INDICATION
     Dosage: 20 MILLIGRAM, QD
     Route: 065
  33. DUROGESIC [Interacting]
     Active Substance: FENTANYL
     Dosage: UNK (DOSE REDUCED)
     Route: 065
  34. ZOLPIDEM [Interacting]
     Active Substance: ZOLPIDEM TARTRATE
     Indication: DRUG ABUSE
     Dosage: OVERUSED
     Route: 065
  35. CALCICHEW?D3 [Interacting]
     Active Substance: CALCIUM\CHOLECALCIFEROL
     Dosage: UNK (DOSE REDUCED)
     Route: 065
  36. ACIDUM FOLICUM [Interacting]
     Active Substance: FOLIC ACID
     Dosage: UNK (DOSE REDUCED)
     Route: 065
  37. CARDILAN [NICOFURANOSE] [Interacting]
     Active Substance: NICOFURANOSE
     Indication: PRODUCT USED FOR UNKNOWN INDICATION
     Dosage: UNK UNK, QD
     Route: 065
  38. CONDROSULF [Interacting]
     Active Substance: SODIUM CHONDROITIN SULFATE
     Indication: RHEUMATOID ARTHRITIS
     Dosage: 800 MILLIGRAM, QD
     Route: 065
  39. POTASSIUM ASPARTATE [Interacting]
     Active Substance: POTASSIUM ASPARTATE
     Indication: PRODUCT USED FOR UNKNOWN INDICATION
     Dosage: UNK
     Route: 065
  40. CARDILAN [MAGNESIUM ASPARTATE;POTASSIUM ASPARTATE] [Interacting]
     Active Substance: MAGNESIUM ASPARTATE\POTASSIUM ASPARTATE
     Indication: PRODUCT USED FOR UNKNOWN INDICATION
     Dosage: 1 DOSAGE FORM, PER DAY
     Route: 065
  41. ZOLPIDEM [Interacting]
     Active Substance: ZOLPIDEM TARTRATE
     Dosage: UNK
     Route: 065
  42. MELOXICAM. [Interacting]
     Active Substance: MELOXICAM
     Indication: POST HERPETIC NEURALGIA
     Dosage: 1 DOSAGE FORM, ONCE A WEEK (TABLET)
     Route: 065
     Dates: start: 2015
  43. ACIDUM FOLICUM [Interacting]
     Active Substance: FOLIC ACID
     Indication: PRODUCT USED FOR UNKNOWN INDICATION
     Dosage: UNK UNK, QD
     Route: 065
  44. EUTHYROX [Interacting]
     Active Substance: LEVOTHYROXINE SODIUM
     Indication: AUTOIMMUNE THYROIDITIS
     Dosage: 100 MICROGRAM, QD
     Route: 065
  45. AMLODIPINE [Interacting]
     Active Substance: AMLODIPINE BESYLATE
     Indication: PRODUCT USED FOR UNKNOWN INDICATION
     Dosage: 5 MILLIGRAM, QD (TABLET)
     Route: 065
  46. TRAMADOL. [Interacting]
     Active Substance: TRAMADOL
     Indication: DRUG ABUSE
     Dosage: OVERUSED, MISUSE
     Route: 048
  47. ROSUCARD [Interacting]
     Active Substance: ROSUVASTATIN CALCIUM
     Dosage: UNK (DOSE REDUCED)
     Route: 065
  48. BETALOC ZOK [Interacting]
     Active Substance: METOPROLOL SUCCINATE
     Indication: PRODUCT USED FOR UNKNOWN INDICATION
     Dosage: 25 MILLIGRAM, QD
     Route: 065
  49. MAGNESIUM ASPARTATE [Interacting]
     Active Substance: MAGNESIUM ASPARTATE
     Indication: PRODUCT USED FOR UNKNOWN INDICATION
     Dosage: MEDICATION ERROR
     Route: 065
  50. PREGABALIN. [Concomitant]
     Active Substance: PREGABALIN
     Indication: PRODUCT USED FOR UNKNOWN INDICATION
     Dosage: UNK
     Route: 065

REACTIONS (48)
  - Hyponatraemia [Recovered/Resolved]
  - Vertigo [Recovered/Resolved]
  - Hypertension [Recovered/Resolved]
  - Concomitant disease aggravated [Recovered/Resolved]
  - Poor quality sleep [Recovered/Resolved]
  - Intentional product misuse [Unknown]
  - Overdose [Recovered/Resolved]
  - Foreign body [Recovered/Resolved]
  - Hypokalaemia [Recovered/Resolved]
  - Oxygen saturation decreased [Recovered/Resolved]
  - Pelvic fracture [Recovered/Resolved]
  - Restlessness [Recovered/Resolved]
  - Condition aggravated [Recovered/Resolved]
  - Self-medication [Recovered/Resolved]
  - Drug interaction [Recovered/Resolved]
  - Liver function test increased [Recovered/Resolved]
  - Confusional state [Recovered/Resolved]
  - Fall [Recovered/Resolved]
  - Fracture [Recovered/Resolved]
  - Contusion [Recovered/Resolved]
  - Dizziness [Recovered/Resolved]
  - Reduced facial expression [Recovered/Resolved]
  - Atrial fibrillation [Recovered/Resolved]
  - Head discomfort [Recovered/Resolved]
  - Listless [Recovered/Resolved]
  - Apathy [Recovered/Resolved]
  - Drug abuse [Unknown]
  - Bedridden [Recovered/Resolved]
  - Affect lability [Recovered/Resolved]
  - Cognitive disorder [Recovered/Resolved]
  - Anxiety [Recovered/Resolved]
  - Dehydration [Recovered/Resolved]
  - Discomfort [Recovered/Resolved]
  - Delirium [Recovered/Resolved]
  - Hypoacusis [Recovered/Resolved]
  - Sleep disorder [Recovered/Resolved]
  - Prescription drug used without a prescription [Unknown]
  - Encephalopathy [Recovered/Resolved]
  - Loss of personal independence in daily activities [Recovered/Resolved]
  - Urinary retention [Recovered/Resolved]
  - Nausea [Recovered/Resolved]
  - Medication error [Recovered/Resolved]
  - General physical health deterioration [Recovered/Resolved]
  - Cognitive disorder [Recovered/Resolved]
  - Deafness [Recovered/Resolved]
  - Product use issue [Recovered/Resolved]
  - Off label use [Unknown]
  - Mobility decreased [Recovered/Resolved]

NARRATIVE: CASE EVENT DATE: 2019
